FAERS Safety Report 9763919 (Version 1)
Quarter: 2013Q4

REPORT INFORMATION
  Report Type: Other
  Country: JP (occurrence: JP)
  Receive Date: 20131216
  Receipt Date: 20131216
  Transmission Date: 20140711
  Serious: Yes (Other)
  Sender: FDA-Public Use
  Company Number: JP-US-EMD SERONO, INC.-7255907

PATIENT
  Age: 36 Year
  Sex: Female

DRUGS (4)
  1. LEVOTHYROXINE [Suspect]
     Indication: PRODUCT USED FOR UNKNOWN INDICATION
     Dosage: 50 TO 300 MICROGRAM
  2. CHORIOGONADOTROPIN ALFA [Suspect]
     Indication: PREGNANCY
  3. CALCITRIOL [Suspect]
     Indication: PRODUCT USED FOR UNKNOWN INDICATION
  4. CALCIUM CARBONATE [Suspect]
     Indication: PRODUCT USED FOR UNKNOWN INDICATION
     Dosage: 250 TO 1500MG

REACTIONS (4)
  - Cephalo-pelvic disproportion [Unknown]
  - Oestradiol decreased [Unknown]
  - Live birth [Recovered/Resolved]
  - Maternal exposure during pregnancy [Recovered/Resolved]
